FAERS Safety Report 6168325-X (Version None)
Quarter: 2009Q2

REPORT INFORMATION
  Report Type: 
  Country: None (occurrence: None)
  Receive Date: 20090427
  Receipt Date: 20090415
  Transmission Date: 20091009
  Serious: Yes (Disabling)
  Sender: FDA-Public Use
  Company Number: FR-CELGENEUS-056-20785-09030275

PATIENT
  Sex: Female
  Weight: 60 kg

DRUGS (4)
  1. THALIDOMIDE [Suspect]
     Indication: MULTIPLE MYELOMA
     Route: 048
     Dates: start: 20081208, end: 20090220
  2. THALIDOMIDE [Suspect]
     Route: 048
     Dates: start: 20090101
  3. MELPHALAN [Concomitant]
     Indication: MULTIPLE MYELOMA
     Route: 048
     Dates: start: 20081208
  4. PREDNISONE [Concomitant]
     Indication: MULTIPLE MYELOMA
     Route: 048
     Dates: start: 20081208

REACTIONS (1)
  - VISUAL ACUITY REDUCED [None]
